FAERS Safety Report 7444300-X (Version None)
Quarter: 2011Q2

REPORT INFORMATION
  Report Type: 
  Country: None (occurrence: None)
  Receive Date: 20110429
  Receipt Date: 20110422
  Transmission Date: 20111010
  Serious: Yes (Other)
  Sender: FDA-Public Use
  Company Number: JP-JNJFOC-20110411174

PATIENT

DRUGS (2)
  1. LOPEMIN [Suspect]
     Indication: DIARRHOEA
     Route: 048
  2. LOPEMIN [Suspect]
     Route: 048

REACTIONS (2)
  - DRUG INEFFECTIVE [None]
  - DEHYDRATION [None]
